FAERS Safety Report 25196672 (Version 1)
Quarter: 2025Q2

REPORT INFORMATION
  Report Type: Spontaneous
  Country: US (occurrence: US)
  Receive Date: 20250415
  Receipt Date: 20250415
  Transmission Date: 20250716
  Serious: Yes (Other)
  Sender: AMGEN
  Company Number: US-AMGEN-USASP2025068695

PATIENT
  Age: 33 Year
  Sex: Female

DRUGS (11)
  1. PREDNISONE [Suspect]
     Active Substance: PREDNISONE
     Indication: Diffuse large B-cell lymphoma
     Route: 065
  2. BRENTUXIMAB VEDOTIN [Suspect]
     Active Substance: BRENTUXIMAB VEDOTIN
     Indication: Diffuse large B-cell lymphoma
     Route: 065
  3. CYCLOPHOSPHAMIDE [Suspect]
     Active Substance: CYCLOPHOSPHAMIDE
     Indication: Diffuse large B-cell lymphoma
     Route: 065
  4. DOXORUBICIN [Suspect]
     Active Substance: DOXORUBICIN
     Indication: Diffuse large B-cell lymphoma
     Route: 065
  5. ETOPOSIDE [Suspect]
     Active Substance: ETOPOSIDE
     Indication: Diffuse large B-cell lymphoma
     Route: 065
  6. IFOSFAMIDE [Concomitant]
     Active Substance: IFOSFAMIDE
  7. PACLITAXEL [Concomitant]
     Active Substance: PACLITAXEL
     Indication: Sarcoma
  8. CARBOPLATIN [Concomitant]
     Active Substance: CARBOPLATIN
     Indication: Sarcoma
  9. CARMUSTINE [Concomitant]
     Active Substance: CARMUSTINE
  10. CYTARABINE [Concomitant]
     Active Substance: CYTARABINE
  11. MELPHALAN [Concomitant]
     Active Substance: MELPHALAN

REACTIONS (3)
  - Febrile neutropenia [Recovered/Resolved]
  - Therapy partial responder [Recovered/Resolved]
  - Abdominal pain [Recovered/Resolved]
